FAERS Safety Report 15350975 (Version 2)
Quarter: 2018Q4

REPORT INFORMATION
  Report Type: Report from Study
  Country: CA (occurrence: CA)
  Receive Date: 20180905
  Receipt Date: 20181005
  Transmission Date: 20190204
  Serious: Yes (Death)
  Sender: FDA-Public Use
  Company Number: CA-TAIHO ONCOLOGY  INC-EU-2018-01350

PATIENT
  Sex: Male
  Weight: 69 kg

DRUGS (1)
  1. LONSURF [Suspect]
     Active Substance: TIPIRACIL HYDROCHLORIDE\TRIFLURIDINE
     Indication: COLORECTAL CANCER METASTATIC
     Dosage: CYCLE 1 STARTED BETWEEN END OF MAY 2018 AND 1ST WEEK OF JUNE 2018.?CYCLE 3 STARTED ON 06 AUGUST 2018
     Route: 048
     Dates: start: 2018, end: 20180817

REACTIONS (2)
  - Asthenia [Fatal]
  - Disease progression [Fatal]

NARRATIVE: CASE EVENT DATE: 2018
